FAERS Safety Report 16372964 (Version 1)
Quarter: 2019Q2

REPORT INFORMATION
  Report Type: Spontaneous
  Country: US (occurrence: US)
  Receive Date: 20190425
  Receipt Date: 20190425
  Transmission Date: 20190711
  Serious: No
  Sender: FDA-Public Use
  Company Number: None

PATIENT
  Age: 96 Year
  Sex: Male

DRUGS (1)
  1. ODOMZO [Suspect]
     Active Substance: SONIDEGIB
     Indication: BASAL CELL CARCINOMA
     Dosage: TAKE 1 CAPSULE BY MOUTH DAILY ON EMPTY STOMACH AT LEAST 1 HOUR BEFORE OR 2 HOURS AFTER A MEAL?
     Route: 048
     Dates: start: 201902

REACTIONS (3)
  - Pneumonia aspiration [None]
  - Hernia [None]
  - Intestinal obstruction [None]
